FAERS Safety Report 20532531 (Version 1)
Quarter: 2022Q1

REPORT INFORMATION
  Report Type: Spontaneous
  Country: US (occurrence: US)
  Receive Date: 20220301
  Receipt Date: 20220301
  Transmission Date: 20220423
  Serious: Yes (Hospitalization)
  Sender: FDA-Public Use
  Company Number: US-MYLANLABS-2022M1015021

PATIENT
  Age: 23 Year
  Sex: Male
  Weight: 84.3 kg

DRUGS (4)
  1. CLOZAPINE [Suspect]
     Active Substance: CLOZAPINE
     Indication: Schizoaffective disorder
     Dosage: 50 MILLIGRAM, HS
     Route: 048
  2. MODAFINIL [Concomitant]
     Active Substance: MODAFINIL
     Dosage: 100 MILLIGRAM, QD
  3. LEVOTHYROXINE [Concomitant]
     Active Substance: LEVOTHYROXINE
     Dosage: 50 MILLIGRAM, QD
  4. CLOZAPINE [Concomitant]
     Active Substance: CLOZAPINE
     Indication: Anxiety
     Dosage: 25 MILLIGRAM

REACTIONS (2)
  - Seizure [Not Recovered/Not Resolved]
  - Syncope [Not Recovered/Not Resolved]

NARRATIVE: CASE EVENT DATE: 20220218
